FAERS Safety Report 19079893 (Version 1)
Quarter: 2021Q2

REPORT INFORMATION
  Report Type: Spontaneous
  Country: GB (occurrence: GB)
  Receive Date: 20210401
  Receipt Date: 20210401
  Transmission Date: 20210717
  Serious: Yes (Hospitalization, Other)
  Sender: FDA-Public Use
  Company Number: GB-SUN PHARMACEUTICAL INDUSTRIES LTD-2021RR-288851

PATIENT
  Age: 1 Hour
  Sex: Female
  Weight: 4.2 kg

DRUGS (1)
  1. SERTRALINE [Suspect]
     Active Substance: SERTRALINE HYDROCHLORIDE
     Indication: DEPRESSION
     Dosage: NK
     Route: 048

REACTIONS (1)
  - Newborn persistent pulmonary hypertension [Not Recovered/Not Resolved]

NARRATIVE: CASE EVENT DATE: 20210213
